FAERS Safety Report 5890070-6 (Version None)
Quarter: 2008Q3

REPORT INFORMATION
  Report Type: 
  Country: None (occurrence: None)
  Receive Date: 20080919
  Receipt Date: 20080902
  Transmission Date: 20090109
  Serious: No
  Sender: FDA-Public Use
  Company Number: US-B.I. PHARMACEUTICALS,INC./RIDGEFIELD-2008-BP-13994BP

PATIENT
  Age: 44 Year
  Sex: Female

DRUGS (1)
  1. ZANTAC 150 [Suspect]
     Indication: ULCER
     Dosage: 150MG PRN
     Route: 048
     Dates: start: 20080801

REACTIONS (1)
  - FAECES DISCOLOURED [None]
